FAERS Safety Report 7757451-7 (Version None)
Quarter: 2011Q3

REPORT INFORMATION
  Report Type: 
  Country: None (occurrence: None)
  Receive Date: 20110916
  Receipt Date: 20110909
  Transmission Date: 20111222
  Serious: Yes (Death, Hospitalization)
  Sender: FDA-Public Use
  Company Number: RS-GENZYME-CAMP-1001716

PATIENT
  Sex: Male
  Weight: 82 kg

DRUGS (29)
  1. METHYLPREDNISOLONE [Concomitant]
     Indication: AUTOIMMUNE PANCYTOPENIA
     Dosage: 80 MG, QD
     Route: 042
     Dates: start: 20110708, end: 20110714
  2. METHYLPREDNISOLONE [Concomitant]
     Indication: FEBRILE NEUTROPENIA
     Dosage: 100 MG, QD
     Route: 042
     Dates: start: 20110715, end: 20110724
  3. NEUPOGEN [Concomitant]
     Dosage: UNK
  4. AMINOPHYLLIN TAB [Concomitant]
     Indication: PLATELET COUNT DECREASED
  5. H2 BLOCKER [Concomitant]
     Indication: SEPSIS
  6. NOVALGETAL [Concomitant]
     Indication: PYREXIA
     Dosage: 2.5 G, BID
     Route: 042
     Dates: start: 20070805, end: 20110807
  7. FEBRICET [Concomitant]
     Indication: FEBRILE NEUTROPENIA
  8. NOVALGETAL [Concomitant]
     Indication: AUTOIMMUNE PANCYTOPENIA
  9. RANITIDINE HCL [Concomitant]
     Indication: FEBRILE NEUTROPENIA
     Dosage: 150 MG, BID
     Route: 042
     Dates: start: 20110805, end: 20110807
  10. ALEMTUZUMAB [Suspect]
     Indication: MULTIPLE SCLEROSIS
     Dosage: 12 MG, QDX5
     Route: 042
     Dates: start: 20081222, end: 20081226
  11. ALEMTUZUMAB [Suspect]
     Dosage: 12 MG, QDX3
     Route: 042
     Dates: start: 20091222, end: 20091224
  12. NEUPOGEN [Concomitant]
     Indication: PLATELET COUNT DECREASED
     Dosage: 48 MU, QD
     Route: 058
     Dates: start: 20110718, end: 20110718
  13. NOVALGETAL [Concomitant]
     Indication: FEBRILE NEUTROPENIA
  14. CITERAL [Concomitant]
     Indication: FEBRILE NEUTROPENIA
  15. FORCAS [Concomitant]
     Indication: FEBRILE NEUTROPENIA
  16. METHYLPREDNISOLONE [Concomitant]
     Indication: PLATELET COUNT DECREASED
     Dosage: UNK
  17. AMINOPHYLLIN TAB [Concomitant]
     Indication: SEPSIS
     Dosage: 250 MG, BID
     Route: 042
     Dates: start: 20110805, end: 20110807
  18. OMEPROL [Concomitant]
     Indication: FEBRILE NEUTROPENIA
     Dosage: 150 MG, QD
     Route: 048
     Dates: start: 20110805, end: 20110807
  19. OMEPROL [Concomitant]
     Indication: AUTOIMMUNE PANCYTOPENIA
  20. RANITIDINE HCL [Concomitant]
     Indication: AUTOIMMUNE PANCYTOPENIA
  21. METHYLPREDNISOLONE [Concomitant]
     Dosage: 40 MG, BID
     Route: 042
     Dates: start: 20110805, end: 20110807
  22. FORCAS [Concomitant]
     Indication: SEPSIS
     Dosage: 2 G, BID
     Route: 042
     Dates: start: 20110805, end: 20110807
  23. FORCAS [Concomitant]
     Indication: AUTOIMMUNE PANCYTOPENIA
  24. CITERAL [Concomitant]
     Indication: SEPSIS
     Dosage: 200 MG, BID
     Route: 042
     Dates: start: 20070805, end: 20070807
  25. FEBRICET [Concomitant]
     Indication: PYREXIA
     Dosage: UNK
     Route: 048
     Dates: start: 20110805, end: 20110807
  26. METHYLPREDNISOLONE [Concomitant]
     Dosage: 80 MG, QD
     Route: 042
     Dates: start: 20110725, end: 20110807
  27. IMMUNE GLOBULIN NOS [Concomitant]
     Indication: PLATELET COUNT DECREASED
     Dosage: 30 G, QD
     Route: 042
     Dates: start: 20110717, end: 20110721
  28. CITERAL [Concomitant]
     Indication: AUTOIMMUNE PANCYTOPENIA
  29. FEBRICET [Concomitant]
     Indication: AUTOIMMUNE PANCYTOPENIA

REACTIONS (3)
  - AUTOIMMUNE PANCYTOPENIA [None]
  - SEPSIS [None]
  - FEBRILE NEUTROPENIA [None]
